FAERS Safety Report 6912371-2 (Version None)
Quarter: 2010Q3

REPORT INFORMATION
  Report Type: 
  Country: None (occurrence: None)
  Receive Date: 20100806
  Receipt Date: 20080415
  Transmission Date: 20110219
  Serious: No
  Sender: FDA-Public Use
  Company Number: US-PFIZER INC-2008033807

PATIENT
  Age: 42 Year
  Sex: Female

DRUGS (2)
  1. DILANTIN [Suspect]
     Indication: SIMPLE PARTIAL SEIZURES
     Dates: start: 20080101
  2. LEXAPRO [Interacting]
     Indication: DEPRESSION
     Route: 048
     Dates: start: 20080201, end: 20080301

REACTIONS (5)
  - BLOOD POTASSIUM INCREASED [None]
  - BLOOD SODIUM INCREASED [None]
  - DRUG INTERACTION [None]
  - FATIGUE [None]
  - MALAISE [None]
